FAERS Safety Report 14582864 (Version 1)
Quarter: 2018Q1

REPORT INFORMATION
  Report Type: Report from Study
  Country: US (occurrence: US)
  Receive Date: 20180228
  Receipt Date: 20180228
  Transmission Date: 20180509
  Serious: Yes (Hospitalization)
  Sender: FDA-Public Use
  Company Number: US-PFIZER INC-2018079301

PATIENT
  Age: 15 Year
  Sex: Female
  Weight: 58.3 kg

DRUGS (5)
  1. CYCLOPHOSPHAMIDE. [Suspect]
     Active Substance: CYCLOPHOSPHAMIDE
     Dosage: 600 MG/M2/DOSE IV OVER 30-60 MIN ON DAYS 1-2 (TOTAL DOSE ADMINISTERED THIS COURSE: 960 MG)
     Route: 042
     Dates: start: 20170428, end: 20170429
  2. PREDNISONE. [Suspect]
     Active Substance: PREDNISONE
     Dosage: 20 MG/M2/DOSE PO BID ON DAYS 1-7 (TOTAL DOSE ADMINISTERED THIS COURSE: 455 MG)
     Route: 048
     Dates: start: 20170428, end: 20170504
  3. DOXORUBICIN HCL [Suspect]
     Active Substance: DOXORUBICIN HYDROCHLORIDE
     Dosage: 25 MG/M2/DOSE IV BOLUS OR INTERMITTENT INFUSION OVER 1-15 MIN ON DAYS 1 AND 2, TOTAL DOSE: 82 MG
     Route: 040
     Dates: start: 20170428, end: 20170429
  4. BRENTUXIMAB VEDOTIN RECOMBINANT [Suspect]
     Active Substance: BRENTUXIMAB VEDOTIN
     Dosage: 1.8 MG/KG/DOSE (MAX DOSE IS 180 MG) IV OVER 30 MIN ON DAY 1 (TOTAL DOSE THIS COURSE: 105 MG)
     Route: 042
     Dates: start: 20170428, end: 20170428
  5. VP-16 [Suspect]
     Active Substance: ETOPOSIDE
     Dosage: 125 MG/M2/DOSE IV OVER 60-120 MIN ON DAYS 1-3 (TOTAL DOSE ADMINISTERED THIS COURSE: 612 MG)
     Route: 042
     Dates: start: 20170428, end: 20170430

REACTIONS (3)
  - Nausea [Recovered/Resolved]
  - Oesophagitis [Recovered/Resolved]
  - Febrile neutropenia [Recovered/Resolved]

NARRATIVE: CASE EVENT DATE: 20170506
